FAERS Safety Report 19441780 (Version 1)
Quarter: 2021Q2

REPORT INFORMATION
  Report Type: Spontaneous
  Country: US (occurrence: US)
  Receive Date: 20210618
  Receipt Date: 20210618
  Transmission Date: 20210717
  Serious: Yes (Hospitalization, Disabling, Other)
  Sender: FDA-Public Use
  Company Number: None

PATIENT
  Age: 27 Year
  Sex: Female
  Weight: 63 kg

DRUGS (3)
  1. VRAYLAR [Suspect]
     Active Substance: CARIPRAZINE
     Indication: BIPOLAR DISORDER
     Route: 048
     Dates: start: 20210218, end: 20210228
  2. REMERON [Concomitant]
     Active Substance: MIRTAZAPINE
  3. ZONISAMIDE. [Concomitant]
     Active Substance: ZONISAMIDE

REACTIONS (10)
  - Vision blurred [None]
  - Depression [None]
  - Insomnia [None]
  - Tremor [None]
  - Drooling [None]
  - Loss of personal independence in daily activities [None]
  - Seizure [None]
  - Mania [None]
  - Movement disorder [None]
  - Suicide attempt [None]

NARRATIVE: CASE EVENT DATE: 20210301
